FAERS Safety Report 18178604 (Version 3)
Quarter: 2024Q1

REPORT INFORMATION
  Report Type: Spontaneous
  Country: FR (occurrence: FR)
  Receive Date: 20200820
  Receipt Date: 20240315
  Transmission Date: 20240410
  Serious: Yes (Hospitalization)
  Sender: FDA-Public Use
  Company Number: None

PATIENT
  Age: 77 Year
  Sex: Female
  Weight: 72 kg

DRUGS (10)
  1. ALIMTA [Suspect]
     Active Substance: PEMETREXED DISODIUM
     Indication: Metastatic bronchial carcinoma
     Dosage: UNK UNK, UNKNOWN
     Route: 042
     Dates: start: 20200331, end: 20200512
  2. KEYTRUDA [Suspect]
     Active Substance: PEMBROLIZUMAB
     Indication: Metastatic bronchial carcinoma
     Dosage: UNK, UNKNOWN
     Route: 042
     Dates: start: 20200331, end: 20200512
  3. CARBOPLATIN [Suspect]
     Active Substance: CARBOPLATIN
     Indication: Metastatic bronchial carcinoma
     Dosage: UNK, UNKNOWN
     Route: 042
     Dates: start: 20200331, end: 20200512
  4. LOVENOX [Concomitant]
     Active Substance: ENOXAPARIN SODIUM
     Indication: Product used for unknown indication
     Dosage: 4000 INTERNATIONAL UNIT, DAILY
     Route: 058
     Dates: start: 20200604, end: 20200617
  5. LOSARTAN POTASSIUM [Concomitant]
     Active Substance: LOSARTAN POTASSIUM
     Indication: Product used for unknown indication
     Dosage: 50 MG, DAILY
     Route: 048
  6. SOLUPRED [PREDNISOLONE METASULFOBENZOATE SODI [Concomitant]
     Indication: Product used for unknown indication
     Dosage: 3 DOSAGE FORM, DAILY
     Route: 048
     Dates: start: 20200604
  7. BISOPROLOL FUMARATE [Concomitant]
     Active Substance: BISOPROLOL FUMARATE
     Indication: Product used for unknown indication
     Dosage: 10 MG, DAILY
     Route: 048
  8. BISOPROLOL FUMARATE [Concomitant]
     Active Substance: BISOPROLOL FUMARATE
     Dosage: 2.5 MG, DAILY
     Route: 048
  9. POTASSIUM CHLORIDE [Concomitant]
     Active Substance: POTASSIUM CHLORIDE
     Indication: Product used for unknown indication
     Dosage: 1200 MG, DAILY
     Route: 048
     Dates: start: 20200604
  10. FOLIC ACID [Concomitant]
     Active Substance: FOLIC ACID
     Indication: Product used for unknown indication
     Dosage: 1 DOSAGE FORM, DAILY
     Route: 048
     Dates: start: 20200325, end: 20200620

REACTIONS (6)
  - Hepatitis [Recovering/Resolving]
  - Jaundice [Not Recovered/Not Resolved]
  - Cholestasis [Not Recovered/Not Resolved]
  - Transaminases increased [Recovering/Resolving]
  - Hepatic cytolysis [Recovering/Resolving]
  - Off label use [Unknown]

NARRATIVE: CASE EVENT DATE: 20200331
